FAERS Safety Report 7384046-X (Version None)
Quarter: 2011Q1

REPORT INFORMATION
  Report Type: 
  Country: None (occurrence: None)
  Receive Date: 20110330
  Receipt Date: 20110317
  Transmission Date: 20110831
  Serious: Yes (Hospitalization, Disabling)
  Sender: FDA-Public Use
  Company Number: PHHY2011FR23761

PATIENT
  Age: 33 Year
  Sex: Female

DRUGS (2)
  1. LEELOO [Suspect]
     Indication: CONTRACEPTION
     Dosage: 1 DF, QD
     Route: 048
     Dates: start: 20101112
  2. ISOTRETINOIN [Suspect]
     Indication: ACNE
     Dosage: 50 MG, QD
     Route: 048
     Dates: start: 20101112

REACTIONS (3)
  - ENCEPHALOPATHY [None]
  - HYPOACUSIS [None]
  - ARTERIAL DISORDER [None]
